FAERS Safety Report 7118588-9 (Version None)
Quarter: 2010Q4

REPORT INFORMATION
  Report Type: 
  Country: None (occurrence: None)
  Receive Date: 20101123
  Receipt Date: 20100406
  Transmission Date: 20110411
  Serious: No
  Sender: FDA-Public Use
  Company Number: US-MYLANLABS-2010S1005843

PATIENT
  Age: 54 Year
  Sex: Female

DRUGS (5)
  1. NADOLOL [Suspect]
     Indication: HYPERTENSION
     Route: 048
     Dates: start: 20100201, end: 20100330
  2. NADOLOL [Suspect]
     Route: 048
     Dates: start: 20100330
  3. PLAVIX [Concomitant]
     Indication: STENT PLACEMENT
     Dates: start: 20100903
  4. SPIRONOLACTONE [Concomitant]
     Indication: HYPERTENSION
     Dates: start: 20080101
  5. ASPIRIN [Concomitant]

REACTIONS (5)
  - ABDOMINAL DISTENSION [None]
  - COUGH [None]
  - DYSPEPSIA [None]
  - DYSPNOEA [None]
  - WEIGHT INCREASED [None]
